FAERS Safety Report 19301100 (Version 1)
Quarter: 2021Q2

REPORT INFORMATION
  Report Type: Spontaneous
  Country: US (occurrence: US)
  Receive Date: 20210525
  Receipt Date: 20210525
  Transmission Date: 20210717
  Serious: Yes (Other)
  Sender: FDA-Public Use
  Company Number: None

PATIENT
  Age: 66 Year
  Sex: Female
  Weight: 75.2 kg

DRUGS (1)
  1. RECLAST [Suspect]
     Active Substance: ZOLEDRONIC ACID
     Indication: OSTEOPOROSIS
     Dosage: ?          OTHER FREQUENCY:ONCE;?
     Route: 041
     Dates: start: 20210503, end: 20210503

REACTIONS (5)
  - Oropharyngeal discomfort [None]
  - Headache [None]
  - Chest discomfort [None]
  - Infusion related reaction [None]
  - Eye pain [None]

NARRATIVE: CASE EVENT DATE: 20210503
